FAERS Safety Report 9573417 (Version 1)
Quarter: 2013Q3

REPORT INFORMATION
  Report Type: Spontaneous
  Country: FR (occurrence: None)
  Receive Date: 20130927
  Receipt Date: 20130927
  Transmission Date: 20140515
  Serious: Yes (Life-Threatening, Hospitalization)
  Sender: FDA-Public Use
  Company Number: DSM-2013-00857

PATIENT
  Age: 88 Year
  Sex: Female

DRUGS (6)
  1. OLMETEC [Suspect]
     Indication: HYPERTENSION
     Route: 048
     Dates: end: 20130731
  2. NORSET [Suspect]
     Indication: PRODUCT USED FOR UNKNOWN INDICATION
     Route: 048
     Dates: start: 20130627, end: 20130731
  3. INEXIUM [Suspect]
     Indication: PRODUCT USED FOR UNKNOWN INDICATION
     Route: 048
     Dates: end: 20130731
  4. ALDACTONE [Suspect]
     Indication: HYPERTENSION
     Route: 048
     Dates: end: 20130731
  5. MODOPAR (LEVODOPA, BENSERAZIDE HYDROCHLORIDE) (LEVODOPA, BENSERAZIDE HYDROCHLORIDE) [Concomitant]
  6. ISKEDYL (RAUBASINE, DIHYDROERGOCRISTINE MESILATE) (RAUASINE, DIHYDROERGOCRISTINE MESILATE) [Concomitant]

REACTIONS (5)
  - Hyponatraemia [None]
  - Renal failure acute [None]
  - Hyperkalaemia [None]
  - Urinary tract infection [None]
  - Diarrhoea [None]
